FAERS Safety Report 9413106 (Version 2)
Quarter: 2013Q3

REPORT INFORMATION
  Report Type: Spontaneous
  Country: US (occurrence: US)
  Receive Date: 20130722
  Receipt Date: 20130814
  Transmission Date: 20140515
  Serious: Yes (Other)
  Sender: FDA-Public Use
  Company Number: US-BRISTOL-MYERS SQUIBB COMPANY-19127885

PATIENT
  Age: 82 Year
  Sex: Male

DRUGS (5)
  1. METFORMIN HCL [Suspect]
  2. CELEBREX [Suspect]
  3. PANTOPRAZOLE [Suspect]
  4. LISINOPRIL [Suspect]
  5. LEVITRA [Concomitant]

REACTIONS (1)
  - Glaucoma [Unknown]
